FAERS Safety Report 14537617 (Version 1)
Quarter: 2018Q1

REPORT INFORMATION
  Report Type: Spontaneous
  Country: US (occurrence: US)
  Receive Date: 20180215
  Receipt Date: 20180215
  Transmission Date: 20180509
  Serious: No
  Sender: FDA-Public Use
  Company Number: US-AMGEN-USASP2018020188

PATIENT
  Sex: Female

DRUGS (1)
  1. ENBREL [Suspect]
     Active Substance: ETANERCEPT
     Indication: PSORIATIC ARTHROPATHY
     Dosage: 25 MG, UNK
     Route: 065

REACTIONS (5)
  - Gastric disorder [Unknown]
  - Feeling abnormal [Unknown]
  - Chills [Unknown]
  - Fatigue [Unknown]
  - Malaise [Not Recovered/Not Resolved]
